FAERS Safety Report 21417171 (Version 3)
Quarter: 2022Q4

REPORT INFORMATION
  Report Type: Spontaneous
  Country: US (occurrence: US)
  Receive Date: 20221006
  Receipt Date: 20221124
  Transmission Date: 20230113
  Serious: Yes (Hospitalization, Disabling, Other)
  Sender: FDA-Public Use
  Company Number: US-009507513-1812USA006019

PATIENT
  Age: 61 Year
  Sex: Female
  Weight: 72.562 kg

DRUGS (13)
  1. ZOCOR [Suspect]
     Active Substance: SIMVASTATIN
     Dosage: UNK
     Route: 048
  2. ZOSTAVAX [Suspect]
     Active Substance: VARICELLA-ZOSTER VIRUS STRAIN OKA/MERCK LIVE ANTIGEN
     Indication: Prophylaxis
     Dosage: 1 MILLILITER
     Route: 058
     Dates: start: 20150416, end: 20150416
  3. XOPENEX [Suspect]
     Active Substance: LEVALBUTEROL HYDROCHLORIDE
     Indication: Asthma
     Dosage: VIA NEBULIZATION
     Route: 055
     Dates: start: 201505
  4. ALBUTEROL [Suspect]
     Active Substance: ALBUTEROL
     Indication: Asthma
     Dosage: VIA NEBULIZATION
     Route: 055
     Dates: start: 201505
  5. FLUZONE [Suspect]
     Active Substance: INFLUENZA A VIRUS A/CALIFORNIA/7/2009 X-179A (H1N1) ANTIGEN (FORMALDEHYDE INACTIVATED)\INFLUENZA A V
     Dosage: UNK
  6. FLUARIX NOS [Suspect]
     Active Substance: INFLUENZA VIRUS VACCINE
     Dosage: UNK
  7. FLUARIX NOS [Suspect]
     Active Substance: INFLUENZA VIRUS VACCINE
     Dosage: UNK
  8. SINGULAIR [Concomitant]
     Active Substance: MONTELUKAST SODIUM
     Indication: Asthma
     Dosage: 10 MILLIGRAM, QD
     Route: 048
     Dates: start: 2009
  9. DETROL [Concomitant]
     Active Substance: TOLTERODINE TARTRATE
     Indication: Hypertonic bladder
     Dosage: 1 CAPSULE DAILY
     Route: 048
     Dates: start: 2008, end: 201801
  10. LEXAPRO [Concomitant]
     Active Substance: ESCITALOPRAM OXALATE
     Indication: Anxiety
     Dosage: 10MG DAILY
     Dates: start: 2004
  11. ACETAMINOPHEN\OXYCODONE HYDROCHLORIDE [Concomitant]
     Active Substance: ACETAMINOPHEN\OXYCODONE HYDROCHLORIDE
     Indication: Pain
     Dosage: 10 MILLIGRAM (1 TABLET), QD (DAILY) AS NEEDED
     Route: 048
     Dates: start: 2009
  12. ZYRTEC [Concomitant]
     Active Substance: CETIRIZINE HYDROCHLORIDE
     Indication: Allergic sinusitis
     Dosage: 10 MILLIGRAM, QD (DAILY)
     Dates: start: 2008
  13. CYANOCOBALAMIN\FOLIC ACID\PYRIDOXINE HYDROCHLORIDE [Concomitant]
     Active Substance: CYANOCOBALAMIN\FOLIC ACID\PYRIDOXINE HYDROCHLORIDE
     Indication: Vitamin supplementation
     Dosage: 1 TABLET DAILY
     Route: 048
     Dates: start: 2008

REACTIONS (78)
  - Asthma [Not Recovered/Not Resolved]
  - Pneumonia [Not Recovered/Not Resolved]
  - Bronchospasm [Recovering/Resolving]
  - Cardiac failure congestive [Unknown]
  - Abdominal abscess [Unknown]
  - Carotid artery occlusion [Unknown]
  - Carotid artery stenosis [Unknown]
  - Cataract [Unknown]
  - Deafness [Unknown]
  - Pneumobilia [Unknown]
  - Pneumonia bacterial [Unknown]
  - Pulmonary embolism [Unknown]
  - Nephrolithiasis [Unknown]
  - Aortic arteriosclerosis [Unknown]
  - Type 2 diabetes mellitus [Unknown]
  - Mitral valve incompetence [Unknown]
  - Surgery [Unknown]
  - Bronchitis [Recovering/Resolving]
  - Leukopenia [Unknown]
  - Polymyalgia rheumatica [Unknown]
  - Neuropathy peripheral [Unknown]
  - Abdominal hernia [Unknown]
  - Anaemia vitamin B12 deficiency [Unknown]
  - Cardiomegaly [Unknown]
  - Dry eye [Unknown]
  - Ear pain [Unknown]
  - Eustachian tube disorder [Unknown]
  - Exostosis [Unknown]
  - Folate deficiency [Unknown]
  - Functional gastrointestinal disorder [Unknown]
  - Goitre [Unknown]
  - Lumbar spinal stenosis [Unknown]
  - Metabolic surgery [Unknown]
  - Migraine [Unknown]
  - Migraine [Not Recovered/Not Resolved]
  - Neuralgia [Unknown]
  - Peripheral swelling [Unknown]
  - Productive cough [Unknown]
  - Pulmonary mass [Not Recovered/Not Resolved]
  - Vasomotor rhinitis [Unknown]
  - Sacroiliitis [Not Recovered/Not Resolved]
  - Seroma [Unknown]
  - Thyroid mass [Unknown]
  - Urinary incontinence [Unknown]
  - Weight increased [Unknown]
  - Chronic obstructive pulmonary disease [Unknown]
  - Lung hyperinflation [Unknown]
  - Pelvic fluid collection [Unknown]
  - Pulmonary granuloma [Unknown]
  - Lower respiratory tract infection [Unknown]
  - Pulmonary mass [Unknown]
  - Seroma [Unknown]
  - Blood pressure fluctuation [Unknown]
  - Endothelial dysfunction [Unknown]
  - Onychomycosis [Unknown]
  - Restless legs syndrome [Unknown]
  - Intermittent claudication [Unknown]
  - Myalgia [Unknown]
  - Thyroiditis [Unknown]
  - Carotid bruit [Unknown]
  - Gastrointestinal disorder [Recovered/Resolved]
  - Sinusitis [Unknown]
  - Oedema peripheral [Unknown]
  - Upper respiratory tract infection [Unknown]
  - Constipation [Unknown]
  - Asthenia [Recovered/Resolved]
  - Arthralgia [Not Recovered/Not Resolved]
  - Rash [Unknown]
  - Biliary dilatation [Unknown]
  - Enterococcal infection [Unknown]
  - Hyperkalaemia [Unknown]
  - Hypoxia [Unknown]
  - Volvulus [Unknown]
  - Escherichia bacteraemia [Unknown]
  - Incisional hernia [Unknown]
  - Abdominal pain [Unknown]
  - Internal hernia [Unknown]
  - Incorrect dose administered [Unknown]

NARRATIVE: CASE EVENT DATE: 20150401
